FAERS Safety Report 8514471-2 (Version None)
Quarter: 2012Q3

REPORT INFORMATION
  Report Type: 
  Country: None (occurrence: None)
  Receive Date: 20120717
  Receipt Date: 20120713
  Transmission Date: 20120928
  Serious: Yes (Death)
  Sender: FDA-Public Use
  Company Number: US-PFIZER INC-2012170707

PATIENT
  Sex: Male

DRUGS (1)
  1. XALKORI [Suspect]
     Indication: BRAIN NEOPLASM MALIGNANT
     Dosage: 250 MG, 2X/DAY
     Route: 048
     Dates: start: 20120507

REACTIONS (1)
  - DEATH [None]
